FAERS Safety Report 5613828-7 (Version None)
Quarter: 2008Q1

REPORT INFORMATION
  Report Type: 
  Country: None (occurrence: None)
  Receive Date: 20080130
  Receipt Date: 20071218
  Transmission Date: 20080703
  Serious: Yes (Other)
  Sender: FDA-Public Use
  Company Number: USEN-79ZP9M

PATIENT

DRUGS (1)
  1. DURAPREP [Suspect]
     Indication: PREOPERATIVE CARE
     Dosage: TOPICAL SINGLE APPLICATION

REACTIONS (1)
  - UNEVALUABLE EVENT [None]
